FAERS Safety Report 8158603-7 (Version None)
Quarter: 2012Q1

REPORT INFORMATION
  Report Type: 
  Country: None (occurrence: None)
  Receive Date: 20120223
  Receipt Date: 20120215
  Transmission Date: 20120608
  Serious: Yes (Hospitalization)
  Sender: FDA-Public Use
  Company Number: US-BAYER-2011-032867

PATIENT
  Sex: Female
  Weight: 61.224 kg

DRUGS (8)
  1. PHENDIMETRAZINE FUMARATE [Concomitant]
     Indication: DECREASED APPETITE
     Dosage: 35 MG
     Dates: start: 20070301
  2. CALCIUM PYRUVATE [Concomitant]
     Dosage: 750 MG
     Dates: start: 20070301
  3. YASMIN [Suspect]
     Indication: CONTRACEPTION
     Dosage: UNK
     Dates: start: 20060101, end: 20070401
  4. ASPIRIN [Concomitant]
     Dosage: AS NEEDED
     Dates: start: 20020101
  5. IBUPROFEN [Concomitant]
     Dosage: AS NEEDED
     Dates: start: 20020101
  6. MULTI-VITAMIN [Concomitant]
     Dosage: UNK
     Dates: start: 20070301
  7. IBUPROFEN (ADVIL) [Concomitant]
     Dosage: 800 MG
     Dates: start: 20070401
  8. COUMADIN [Concomitant]

REACTIONS (4)
  - INJURY [None]
  - MENTAL DISORDER [None]
  - PAIN [None]
  - PULMONARY EMBOLISM [None]
